FAERS Safety Report 8308820-8 (Version None)
Quarter: 2012Q1

REPORT INFORMATION
  Report Type: 
  Country: None (occurrence: None)
  Receive Date: 20120327
  Receipt Date: 20110304
  Transmission Date: 20120608
  Serious: Yes (Hospitalization)
  Sender: FDA-Public Use
  Company Number: PHHY2011US17952

PATIENT
  Sex: Male

DRUGS (1)
  1. GLEEVEC [Suspect]
     Indication: CHRONIC MYELOID LEUKAEMIA
     Dosage: 200 MG, DAILY, ORAL
     Route: 048
     Dates: start: 20100908

REACTIONS (2)
  - BLOOD SODIUM DECREASED [None]
  - PNEUMONIA [None]
